FAERS Safety Report 26154977 (Version 2)
Quarter: 2025Q4

REPORT INFORMATION
  Report Type: Spontaneous
  Country: JP (occurrence: JP)
  Receive Date: 20251215
  Receipt Date: 20251219
  Transmission Date: 20260118
  Serious: Yes (Hospitalization)
  Sender: BRISTOL-MYERS SQUIBB COMPANY
  Company Number: JP-BRISTOL-MYERS SQUIBB COMPANY-2025-167226

PATIENT
  Sex: Male

DRUGS (2)
  1. YERVOY [Suspect]
     Active Substance: IPILIMUMAB
     Indication: Hepatocellular carcinoma
     Dosage: NUMBER OF DAYS OF ADMINISTRATION: 60 DAYS
     Route: 041
     Dates: start: 202509
  2. OPDIVO [Suspect]
     Active Substance: NIVOLUMAB
     Indication: Hepatocellular carcinoma
     Dosage: NUMBER OF DAYS OF ADMINISTRATION: 60 DAYS
     Route: 041
     Dates: start: 202509

REACTIONS (3)
  - Skin disorder [Unknown]
  - Gastrointestinal disorder [Unknown]
  - Renal disorder [Unknown]
